FAERS Safety Report 4948934-3 (Version None)
Quarter: 2006Q1

REPORT INFORMATION
  Report Type: 
  Country: None (occurrence: None)
  Receive Date: 20060316
  Receipt Date: 20060307
  Transmission Date: 20060701
  Serious: Yes (Life-Threatening, Other)
  Sender: FDA-Public Use
  Company Number: 163-21880-06010628

PATIENT
  Age: 59 Year
  Sex: Female

DRUGS (9)
  1. REVLIMID [Suspect]
     Indication: MYELODYSPLASTIC SYNDROME
     Dosage: 10 MG, QD, ORAL; SEE IMAGE
     Route: 048
     Dates: start: 20060120, end: 20060125
  2. REVLIMID [Suspect]
     Indication: MYELODYSPLASTIC SYNDROME
     Dosage: 10 MG, QD, ORAL; SEE IMAGE
     Route: 048
     Dates: start: 20060217
  3. DESFERAL (DEFEROXAMINE MESILATE) [Concomitant]
  4. ARANESP (DARBOEPOETIN ALFA) [Concomitant]
  5. VIDAZA [Concomitant]
  6. ESTRADIOL [Concomitant]
  7. ACIPHEX [Concomitant]
  8. DETROL LA [Concomitant]
  9. EFFEXOR [Concomitant]

REACTIONS (3)
  - NEUTROPENIA [None]
  - RASH ERYTHEMATOUS [None]
  - RASH PRURITIC [None]
